FAERS Safety Report 7134803-X (Version None)
Quarter: 2010Q4

REPORT INFORMATION
  Report Type: 
  Country: None (occurrence: None)
  Receive Date: 20101203
  Receipt Date: 20101124
  Transmission Date: 20110411
  Serious: Yes (Other)
  Sender: FDA-Public Use
  Company Number: US-JNJFOC-20101007417

PATIENT
  Sex: Female

DRUGS (4)
  1. LEVAQUIN [Suspect]
     Indication: BRONCHITIS
     Route: 048
  2. MEDROL [Suspect]
     Indication: BRONCHITIS
     Route: 065
  3. PREDNISONE [Suspect]
     Indication: BRONCHITIS
     Route: 048
  4. ADVAIR [Concomitant]
     Indication: PRODUCT USED FOR UNKNOWN INDICATION
     Dosage: 500/50 IN 1 PUFF
     Route: 055

REACTIONS (7)
  - CONTRAINDICATION TO MEDICAL TREATMENT [None]
  - GAIT DISTURBANCE [None]
  - JOINT STIFFNESS [None]
  - MUSCULOSKELETAL STIFFNESS [None]
  - MYALGIA [None]
  - PAIN [None]
  - TENDONITIS [None]
